FAERS Safety Report 8327555-9 (Version None)
Quarter: 2012Q2

REPORT INFORMATION
  Report Type: 
  Country: None (occurrence: None)
  Receive Date: 20120502
  Receipt Date: 20120419
  Transmission Date: 20120825
  Serious: No
  Sender: FDA-Public Use
  Company Number: US-BAYER-2012-039498

PATIENT
  Age: 75 Year
  Sex: Male
  Weight: 61 kg

DRUGS (9)
  1. ASPIRIN [Concomitant]
  2. PLAVIX [Concomitant]
  3. AMLODIPINE [Concomitant]
  4. FINASTERIDE [Concomitant]
  5. SINGULAIR [Concomitant]
  6. CRESTOR [Concomitant]
  7. LEXAPRO [Concomitant]
  8. NAPROXEN SODIUM [Suspect]
     Indication: BACK PAIN
     Dosage: 1-2 TABLETS
     Route: 048
     Dates: start: 20110101
  9. TAMSULOSIN HCL [Concomitant]

REACTIONS (1)
  - NO ADVERSE EVENT [None]
